FAERS Safety Report 6656584-6 (Version None)
Quarter: 2010Q1

REPORT INFORMATION
  Report Type: 
  Country: None (occurrence: None)
  Receive Date: 20100329
  Receipt Date: 20100319
  Transmission Date: 20100710
  Serious: Yes (Hospitalization)
  Sender: FDA-Public Use
  Company Number: FI-ABBOTT-10P-055-0633375-00

PATIENT
  Sex: Female

DRUGS (11)
  1. HUMIRA [Suspect]
     Indication: RHEUMATOID ARTHRITIS
     Route: 058
     Dates: start: 20081002, end: 20081201
  2. ENBREL [Suspect]
     Indication: RHEUMATOID ARTHRITIS
     Route: 058
     Dates: start: 20080411, end: 20081001
  3. RITUXIMAB [Suspect]
     Indication: RHEUMATOID ARTHRITIS
     Route: 042
     Dates: start: 20090112, end: 20090813
  4. MYOCRISIN [Concomitant]
     Indication: RHEUMATOID ARTHRITIS
     Route: 030
     Dates: start: 20091020
  5. OXIKLORIN [Concomitant]
     Indication: RHEUMATOID ARTHRITIS
     Route: 048
     Dates: start: 20061101
  6. PREDNISOLON [Concomitant]
     Indication: RHEUMATOID ARTHRITIS
     Route: 048
     Dates: start: 20061101
  7. EMCONCOR [Concomitant]
     Indication: HYPERTENSION
     Route: 048
  8. AMLODIPINE [Concomitant]
     Indication: HYPERTENSION
     Route: 048
  9. ALENDRONAT [Concomitant]
     Indication: OSTEOPOROSIS
     Route: 048
     Dates: start: 20090921
  10. CALCICHEW D3 FORTE [Concomitant]
     Indication: OSTEOPOROSIS
     Dosage: 500MG/10MCG PER DAY
     Route: 048
  11. PULMICORT [Concomitant]
     Indication: ASTHMA
     Route: 055

REACTIONS (3)
  - PLEURAL EFFUSION [None]
  - PLEURISY [None]
  - PULMONARY GRANULOMA [None]
